FAERS Safety Report 10471697 (Version 2)
Quarter: 2014Q3

REPORT INFORMATION
  Report Type: Report from Study
  Country: PR (occurrence: US)
  Receive Date: 20140923
  Receipt Date: 20140923
  Transmission Date: 20150326
  Serious: Yes (Other)
  Sender: FDA-Public Use
  Company Number: PR-ALEXION PHARMACEUTICALS INC-A201002284

PATIENT
  Sex: Male

DRUGS (2)
  1. SOLIRIS [Suspect]
     Active Substance: ECULIZUMAB
     Indication: PAROXYSMAL NOCTURNAL HAEMOGLOBINURIA
     Dosage: UNK, Q 12 DAYS
     Route: 042
  2. SOLIRIS [Suspect]
     Active Substance: ECULIZUMAB
     Dosage: UNK, SINGLE
     Route: 042
     Dates: start: 20101012, end: 20101012

REACTIONS (7)
  - Haemoglobin decreased [Recovering/Resolving]
  - Blood iron increased [Unknown]
  - Haemolysis [Not Recovered/Not Resolved]
  - Transfusion [Not Recovered/Not Resolved]
  - Chromaturia [Unknown]
  - Biopsy bone marrow [Unknown]
  - Fatigue [Unknown]
